FAERS Safety Report 8088266-0 (Version None)
Quarter: 2012Q1

REPORT INFORMATION
  Report Type: 
  Country: None (occurrence: None)
  Receive Date: 20120128
  Receipt Date: 20110425
  Transmission Date: 20120608
  Serious: Yes (Other)
  Sender: FDA-Public Use
  Company Number: US-ABBOTT-11P-163-0721194-00

PATIENT
  Age: 58 Year

DRUGS (24)
  1. LORATADINE [Concomitant]
     Indication: HYPERSENSITIVITY
     Route: 048
  2. BYETTA [Concomitant]
     Indication: DIABETES MELLITUS
  3. SIMVASTATIN [Concomitant]
     Indication: BLOOD CHOLESTEROL
  4. LOVAZA [Concomitant]
     Indication: PRODUCT USED FOR UNKNOWN INDICATION
  5. CO Q-10 [Concomitant]
     Indication: PRODUCT USED FOR UNKNOWN INDICATION
  6. GROUND CINNAMON PILLS [Concomitant]
     Indication: PRODUCT USED FOR UNKNOWN INDICATION
  7. HUMIRA [Suspect]
     Dates: start: 20110101, end: 20110201
  8. OMEPRAZOLE [Concomitant]
     Indication: GASTROOESOPHAGEAL REFLUX DISEASE
     Dosage: EVERY AM
  9. METFFORMIN HYDROCHLORIDE [Concomitant]
     Indication: DIABETES MELLITUS
     Route: 048
  10. HUMIRA [Suspect]
     Indication: PSORIATIC ARTHROPATHY
     Dates: start: 20040101, end: 20110101
  11. GLIPIZIDE [Concomitant]
     Indication: DIABETES MELLITUS
     Route: 048
  12. LISINOPRIL [Concomitant]
     Indication: PROPHYLAXIS
     Route: 048
  13. PROZAC [Concomitant]
     Indication: PRODUCT USED FOR UNKNOWN INDICATION
     Route: 048
     Dates: start: 20080101, end: 20101101
  14. ATENOLOL [Concomitant]
     Indication: ARRHYTHMIA
     Dosage: EVERY AM
  15. GARLIC [Concomitant]
     Indication: PRODUCT USED FOR UNKNOWN INDICATION
  16. APPLE CIDER VINEGAR PILLS [Concomitant]
     Indication: WEIGHT DECREASED
  17. ESTER C [Concomitant]
     Indication: PRODUCT USED FOR UNKNOWN INDICATION
  18. VITAMIN D [Concomitant]
     Indication: PRODUCT USED FOR UNKNOWN INDICATION
  19. CHROMIUM CHLORIDE [Concomitant]
     Indication: PRODUCT USED FOR UNKNOWN INDICATION
  20. PROBIOTIC [Concomitant]
     Indication: DYSPEPSIA
     Dosage: EVERY AM
  21. LISINOPRIL [Concomitant]
     Indication: RENAL DISORDER
  22. MAGNESIUM [Concomitant]
     Indication: PRODUCT USED FOR UNKNOWN INDICATION
     Route: 048
  23. MULTI-VITAMIN [Concomitant]
     Indication: PRODUCT USED FOR UNKNOWN INDICATION
  24. GREEN TEA PILLS [Concomitant]
     Indication: WEIGHT CONTROL

REACTIONS (4)
  - DIABETES MELLITUS [None]
  - SQUAMOUS CELL CARCINOMA OF SKIN [None]
  - ARTHRALGIA [None]
  - CARPAL TUNNEL DECOMPRESSION [None]
